FAERS Safety Report 24991705 (Version 4)
Quarter: 2025Q1

REPORT INFORMATION
  Report Type: Report from Study
  Country: BR (occurrence: BR)
  Receive Date: 20250220
  Receipt Date: 20250325
  Transmission Date: 20250409
  Serious: Yes (Other)
  Sender: NOVARTIS
  Company Number: BR-002147023-NVSC2025BR008119

PATIENT
  Sex: Female

DRUGS (2)
  1. GLIVEC [Suspect]
     Active Substance: IMATINIB MESYLATE
     Indication: Product used for unknown indication
     Route: 065
     Dates: start: 2013
  2. DASATINIB [Suspect]
     Active Substance: DASATINIB
     Indication: Product used for unknown indication
     Route: 065
     Dates: end: 20241111

REACTIONS (18)
  - Pulmonary oedema [Recovered/Resolved]
  - Glaucoma [Not Recovered/Not Resolved]
  - Blindness unilateral [Not Recovered/Not Resolved]
  - Diabetes mellitus [Not Recovered/Not Resolved]
  - Pulmonary oedema [Recovered/Resolved]
  - Cerebrovascular accident [Unknown]
  - Age-related macular degeneration [Unknown]
  - Pleural effusion [Recovered/Resolved]
  - Visual impairment [Not Recovered/Not Resolved]
  - Vision blurred [Not Recovered/Not Resolved]
  - Haemorrhage [Unknown]
  - Eye haemorrhage [Unknown]
  - Rash [Recovered/Resolved]
  - Pleural effusion [Recovered/Resolved]
  - Piloerection [Recovering/Resolving]
  - Dry skin [Recovering/Resolving]
  - Pigmentation disorder [Recovering/Resolving]
  - Ill-defined disorder [Unknown]

NARRATIVE: CASE EVENT DATE: 20130101
